FAERS Safety Report 23805586 (Version 1)
Quarter: 2024Q2

REPORT INFORMATION
  Report Type: Spontaneous
  Country: FI (occurrence: FI)
  Receive Date: 20240502
  Receipt Date: 20240502
  Transmission Date: 20240716
  Serious: Yes (Hospitalization)
  Sender: FDA-Public Use
  Company Number: None

PATIENT
  Age: 22 Year
  Sex: Male

DRUGS (1)
  1. OLANZAPINE PAMOATE [Suspect]
     Active Substance: OLANZAPINE PAMOATE
     Indication: Antipsychotic therapy
     Dosage: EVERY 4 WEEKS
     Route: 030
     Dates: start: 2020

REACTIONS (7)
  - Malaise [Unknown]
  - Dysarthria [Unknown]
  - Depressed level of consciousness [Unknown]
  - Heart rate increased [Unknown]
  - Muscle spasms [Unknown]
  - Dizziness [Unknown]
  - Restlessness [Unknown]

NARRATIVE: CASE EVENT DATE: 20240416
